FAERS Safety Report 17877875 (Version 1)
Quarter: 2020Q2

REPORT INFORMATION
  Report Type: Report from Study
  Country: CA (occurrence: CA)
  Receive Date: 20200609
  Receipt Date: 20200609
  Transmission Date: 20200714
  Serious: Yes (Other)
  Sender: FDA-Public Use
  Company Number: PHHY2014CA155187

PATIENT
  Age: 64 Year
  Sex: Male

DRUGS (3)
  1. LUTETIUM (LU 177) [Concomitant]
     Active Substance: LUTETIUM LU-177
     Indication: PRODUCT USED FOR UNKNOWN INDICATION
     Route: 065
  2. SANDOSTATIN [Suspect]
     Active Substance: OCTREOTIDE ACETATE
     Indication: NEUROENDOCRINE TUMOUR
     Dosage: UNK, ONCE/SINGLE
     Route: 058
     Dates: start: 20141106, end: 20141106
  3. SANDOSTATIN LAR DEPOT [Suspect]
     Active Substance: OCTREOTIDE ACETATE
     Indication: NEUROENDOCRINE TUMOUR
     Dosage: 30 MG, QMO (EVERY 4 WEEK)
     Route: 030
     Dates: start: 20141124

REACTIONS (10)
  - Blood pressure increased [Unknown]
  - Recurrent cancer [Unknown]
  - Metastases to liver [Unknown]
  - Body temperature decreased [Unknown]
  - Blood glucose increased [Recovering/Resolving]
  - Metastases to bone [Unknown]
  - Heart valve incompetence [Unknown]
  - Heart rate decreased [Unknown]
  - Pyrexia [Recovering/Resolving]
  - Musculoskeletal chest pain [Unknown]

NARRATIVE: CASE EVENT DATE: 20141124
